FAERS Safety Report 25058885 (Version 1)
Quarter: 2025Q1

REPORT INFORMATION
  Report Type: Spontaneous
  Country: US (occurrence: None)
  Receive Date: 20250307
  Receipt Date: 20250307
  Transmission Date: 20250409
  Serious: No
  Sender: FDA-CTU
  Company Number: None

PATIENT
  Age: 42 Year
  Sex: Female

DRUGS (2)
  1. ZURZUVAE [Suspect]
     Active Substance: ZURANOLONE
     Indication: Perinatal depression
     Dosage: 50 MG AT BEDTIME ORAL
     Route: 048
  2. BUSPAR [Suspect]
     Active Substance: BUSPIRONE HYDROCHLORIDE

REACTIONS (5)
  - Panic attack [None]
  - Fatigue [None]
  - Anxiety [None]
  - Depression [None]
  - Chest discomfort [None]

NARRATIVE: CASE EVENT DATE: 20250226
